FAERS Safety Report 5241519-3 (Version None)
Quarter: 2007Q1

REPORT INFORMATION
  Report Type: 
  Country: None (occurrence: None)
  Receive Date: 20070220
  Receipt Date: 20070214
  Transmission Date: 20070707
  Serious: Yes (Death)
  Sender: FDA-Public Use
  Company Number: GB-GLAXOSMITHKLINE-B0458366A

PATIENT

DRUGS (1)
  1. ABACAVIR SULFATE [Suspect]
     Indication: HIV INFECTION
     Route: 048

REACTIONS (1)
  - DEATH [None]
